FAERS Safety Report 6818654-9 (Version None)
Quarter: 2010Q3

REPORT INFORMATION
  Report Type: 
  Country: None (occurrence: None)
  Receive Date: 20100706
  Receipt Date: 20090325
  Transmission Date: 20110219
  Serious: No
  Sender: FDA-Public Use
  Company Number: US-PFIZER INC-2009169023

PATIENT
  Age: 14 Month
  Sex: Male
  Weight: 11.791 kg

DRUGS (2)
  1. ZITHROMAX [Suspect]
     Dosage: 200 MG, 1X/DAY
     Route: 048
     Dates: start: 20090209, end: 20090210
  2. TYLENOL [Concomitant]
     Dosage: UNK
     Dates: end: 20090209

REACTIONS (3)
  - DECREASED APPETITE [None]
  - DERMATITIS DIAPER [None]
  - DIARRHOEA [None]
